FAERS Safety Report 7646512-9 (Version None)
Quarter: 2011Q3

REPORT INFORMATION
  Report Type: 
  Country: None (occurrence: None)
  Receive Date: 20110725
  Receipt Date: 20110715
  Transmission Date: 20111222
  Serious: Yes (Other)
  Sender: FDA-Public Use
  Company Number: 2011SP033262

PATIENT
  Sex: Female

DRUGS (1)
  1. SYCREST (ASENAPINE /05706901/) [Suspect]
     Indication: MANIA
     Dosage: 20 MG;QD;

REACTIONS (3)
  - MANIA [None]
  - PRODUCT TASTE ABNORMAL [None]
  - CONDITION AGGRAVATED [None]
